FAERS Safety Report 21099521 (Version 1)
Quarter: 2022Q3

REPORT INFORMATION
  Report Type: Spontaneous
  Country: FR (occurrence: FR)
  Receive Date: 20220719
  Receipt Date: 20220719
  Transmission Date: 20221026
  Serious: Yes (Other)
  Sender: FDA-Public Use
  Company Number: None

PATIENT
  Age: 63 Year
  Sex: Female
  Weight: 67 kg

DRUGS (13)
  1. DAPTOMYCIN [Suspect]
     Active Substance: DAPTOMYCIN
     Indication: Osteomyelitis
     Dosage: 500 MILLIGRAM, QD
     Route: 042
     Dates: start: 20220104, end: 20220118
  2. PIPERACILLIN SODIUM\TAZOBACTAM SODIUM [Suspect]
     Active Substance: PIPERACILLIN SODIUM\TAZOBACTAM SODIUM
     Indication: Osteomyelitis
     Dosage: 4 GRAM, Q8H, 4 G/500 MG
     Route: 042
     Dates: start: 20220104, end: 20220118
  3. CARVEDILOL [Concomitant]
     Active Substance: CARVEDILOL
     Dosage: 12.5 MILLIGRAM, QD
     Route: 048
     Dates: start: 20220103
  4. ENOXAPARIN SODIUM [Concomitant]
     Active Substance: ENOXAPARIN SODIUM
     Dosage: 4000 DOSAGE FORM, QD
     Route: 058
     Dates: start: 20220104, end: 20220208
  5. CANDESARTAN CILEXETIL [Concomitant]
     Active Substance: CANDESARTAN CILEXETIL
     Dosage: 24 MILLIGRAM, QD
     Route: 048
  6. ZOPICLONE [Concomitant]
     Active Substance: ZOPICLONE
     Dosage: 3.5 MILLIGRAM, QD; IF NECESSARY
     Route: 048
  7. PANTOPRAZOLE [Concomitant]
     Active Substance: PANTOPRAZOLE
     Dosage: 20 MILLIGRAM, QD
     Route: 048
     Dates: start: 20220105
  8. ACETAMINOPHEN [Concomitant]
     Active Substance: ACETAMINOPHEN
     Dosage: 1000 MILLIGRAM, Q6H
     Route: 048
     Dates: start: 20220105
  9. ONDANSETRON [Concomitant]
     Active Substance: ONDANSETRON
     Dosage: 4 MILLIGRAM; IF NECESSARY
     Route: 048
     Dates: start: 20220105, end: 20220107
  10. KETOPROFEN [Concomitant]
     Active Substance: KETOPROFEN
     Dosage: 500 MILLIGRAM, Q6H
     Route: 048
     Dates: start: 20220105, end: 20220107
  11. KETOPROFEN [Concomitant]
     Active Substance: KETOPROFEN
     Dosage: 50 MILLIGRAM, Q6H
     Route: 042
     Dates: start: 20220104, end: 20220104
  12. NEFOPAM [Concomitant]
     Active Substance: NEFOPAM
     Dosage: 20 MILLIGRAM, Q4H
     Route: 048
     Dates: start: 20220105
  13. MORPHINE HYDROCHLORIDE [Concomitant]
     Active Substance: MORPHINE HYDROCHLORIDE
     Dosage: 5 MILLIGRAM, Q4H; IF NECESSARY
     Route: 048
     Dates: start: 20220105

REACTIONS (2)
  - Neutropenia [Recovered/Resolved]
  - Liver disorder [Recovering/Resolving]

NARRATIVE: CASE EVENT DATE: 20220118
